FAERS Safety Report 25709899 (Version 1)
Quarter: 2025Q3

REPORT INFORMATION
  Report Type: Report from Study
  Country: CN (occurrence: CN)
  Receive Date: 20250821
  Receipt Date: 20250821
  Transmission Date: 20251021
  Serious: Yes (Other)
  Sender: ROCHE
  Company Number: US-ROCHE-10000365054

PATIENT

DRUGS (6)
  1. RITUXIMAB [Suspect]
     Active Substance: RITUXIMAB
     Indication: Diffuse large B-cell lymphoma
     Route: 065
  2. CYCLOPHOSPHAMIDE [Suspect]
     Active Substance: CYCLOPHOSPHAMIDE
     Indication: Diffuse large B-cell lymphoma
     Route: 065
  3. ZANUBRUTINIB [Suspect]
     Active Substance: ZANUBRUTINIB
     Indication: Diffuse large B-cell lymphoma
     Route: 065
  4. DOXORUBICIN [Suspect]
     Active Substance: DOXORUBICIN
     Indication: Diffuse large B-cell lymphoma
     Route: 065
  5. VINCRISTINE [Suspect]
     Active Substance: VINCRISTINE
     Indication: Diffuse large B-cell lymphoma
     Route: 065
  6. PREDNISONE [Suspect]
     Active Substance: PREDNISONE
     Indication: Diffuse large B-cell lymphoma
     Route: 065

REACTIONS (39)
  - Myelosuppression [Unknown]
  - Infection [Unknown]
  - Hypoproteinaemia [Unknown]
  - Hypokalaemia [Unknown]
  - Pneumonia [Unknown]
  - Upper respiratory tract infection [Unknown]
  - Urinary tract infection [Unknown]
  - Skin infection [Unknown]
  - Eye infection [Unknown]
  - Soft tissue infection [Unknown]
  - Hepatic function abnormal [Unknown]
  - Leukopenia [Unknown]
  - Anaemia [Unknown]
  - Hyperuricaemia [Unknown]
  - Thrombocytopenia [Unknown]
  - Haemorrhage [Unknown]
  - Arrhythmia [Unknown]
  - Hypocalcaemia [Unknown]
  - Neuropathy peripheral [Unknown]
  - Herpes simplex [Unknown]
  - Pyrexia [Unknown]
  - Mouth ulceration [Unknown]
  - Cholelithiasis [Unknown]
  - Pericardial effusion [Unknown]
  - Pleural effusion [Unknown]
  - Colorectal adenoma [Unknown]
  - Pulmonary embolism [Unknown]
  - Hypercalcaemia [Unknown]
  - Hyponatraemia [Unknown]
  - Renal failure [Unknown]
  - Neutropenia [Unknown]
  - Myocardial infarction [Unknown]
  - Thrombosis [Unknown]
  - Hypoxia [Unknown]
  - Gastrooesophageal reflux disease [Unknown]
  - Dermatitis herpetiformis [Unknown]
  - Coronary artery disease [Unknown]
  - Hyperlipidaemia [Unknown]
  - Pancreatitis [Unknown]
